FAERS Safety Report 8764248 (Version 4)
Quarter: 2013Q2

REPORT INFORMATION
  Report Type: Spontaneous
  Country: DE (occurrence: CA)
  Receive Date: 20120831
  Receipt Date: 20130611
  Transmission Date: 20140414
  Serious: Yes (Hospitalization, Other)
  Sender: FDA-Public Use
  Company Number: CA-FRI-1000038258

PATIENT
  Age: 65 Year
  Sex: Male
  Weight: 72 kg

DRUGS (1)
  1. ROFLUMILAST [Suspect]
     Indication: CHRONIC OBSTRUCTIVE PULMONARY DISEASE
     Dosage: 500 MCG
     Route: 048
     Dates: start: 201206

REACTIONS (4)
  - Pneumonia [Recovering/Resolving]
  - Chronic obstructive pulmonary disease [Recovering/Resolving]
  - Nasopharyngitis [Unknown]
  - Malaise [Unknown]
